FAERS Safety Report 14851700 (Version 2)
Quarter: 2018Q2

REPORT INFORMATION
  Report Type: Spontaneous
  Country: CH (occurrence: CH)
  Receive Date: 20180507
  Receipt Date: 20180621
  Transmission Date: 20180711
  Serious: Yes (Hospitalization, Other)
  Sender: FDA-Public Use
  Company Number: CH-AMGEN-CHESP2018060742

PATIENT

DRUGS (8)
  1. VECTIBIX [Suspect]
     Active Substance: PANITUMUMAB
     Indication: METASTASES TO LIVER
     Dosage: UNK
     Route: 065
     Dates: end: 20180228
  2. FOLINIC ACID [Concomitant]
     Active Substance: LEUCOVORIN
     Indication: SMALL INTESTINE ADENOCARCINOMA
  3. IRINOTECAN [Concomitant]
     Active Substance: IRINOTECAN
     Indication: METASTASES TO LIVER
     Dosage: UNK
  4. FOLINIC ACID [Concomitant]
     Active Substance: LEUCOVORIN
     Indication: METASTASES TO LIVER
     Dosage: UNK
  5. IRINOTECAN [Concomitant]
     Active Substance: IRINOTECAN
     Indication: SMALL INTESTINE ADENOCARCINOMA
  6. 5-FU [Concomitant]
     Active Substance: FLUOROURACIL
     Indication: METASTASES TO LIVER
     Dosage: UNK
  7. VECTIBIX [Suspect]
     Active Substance: PANITUMUMAB
     Indication: SMALL INTESTINE ADENOCARCINOMA
  8. 5-FU [Concomitant]
     Active Substance: FLUOROURACIL
     Indication: SMALL INTESTINE ADENOCARCINOMA

REACTIONS (5)
  - Ascites [Unknown]
  - Hepatomegaly [Unknown]
  - Electrolyte imbalance [Unknown]
  - Hepatic failure [Unknown]
  - Metastasis [Unknown]

NARRATIVE: CASE EVENT DATE: 2018
